FAERS Safety Report 9068767 (Version 1)
Quarter: 2013Q1

REPORT INFORMATION
  Report Type: Spontaneous
  Country: BR (occurrence: None)
  Receive Date: 20130122
  Receipt Date: 20130122
  Transmission Date: 20140127
  Serious: Yes (Hospitalization)
  Sender: FDA-Public Use
  Company Number: 2013-000166

PATIENT
  Age: 80 Year
  Sex: Female

DRUGS (1)
  1. ACTONEL (RISEDRONATE SODIUM) TABLET, 150MG [Suspect]
     Dosage: TOOK FIRST DOSE; 150 MG ONCE MONTHLY,
     Route: 048
     Dates: start: 20130116

REACTIONS (6)
  - Blood pressure increased [None]
  - Feeling abnormal [None]
  - Cold sweat [None]
  - Nausea [None]
  - Pain in extremity [None]
  - Hypoaesthesia [None]
